FAERS Safety Report 10469219 (Version 10)
Quarter: 2015Q4

REPORT INFORMATION
  Report Type: Report from Study
  Country: US (occurrence: US)
  Receive Date: 20140923
  Receipt Date: 20151028
  Transmission Date: 20160304
  Serious: Yes (Hospitalization, Other)
  Sender: FDA-Public Use
  Company Number: US-ALEXION-A201403630

PATIENT
  Age: 56 Year
  Sex: Female

DRUGS (1)
  1. SOLIRIS [Suspect]
     Active Substance: ECULIZUMAB
     Indication: HAEMOLYTIC URAEMIC SYNDROME
     Dosage: UNK
     Route: 042
     Dates: start: 20110120

REACTIONS (17)
  - Cough [Unknown]
  - Pulmonary hypertension [Not Recovered/Not Resolved]
  - Sleep apnoea syndrome [Unknown]
  - Pleural effusion [Recovering/Resolving]
  - Dyspnoea [Unknown]
  - Arterial disorder [Unknown]
  - Heart injury [Unknown]
  - Dyspnoea [Not Recovered/Not Resolved]
  - Dry skin [Not Recovered/Not Resolved]
  - Pruritus [Unknown]
  - Influenza like illness [Recovering/Resolving]
  - Renal impairment [Unknown]
  - Dyspnoea exertional [Unknown]
  - Chest discomfort [Not Recovered/Not Resolved]
  - Oxygen saturation decreased [Unknown]
  - Cough [Not Recovered/Not Resolved]
  - Blood creatinine increased [Not Recovered/Not Resolved]

NARRATIVE: CASE EVENT DATE: 2014
